FAERS Safety Report 8094183-2 (Version None)
Quarter: 2012Q1

REPORT INFORMATION
  Report Type: 
  Country: None (occurrence: None)
  Receive Date: 20120130
  Receipt Date: 20120130
  Transmission Date: 20120608
  Serious: Yes (Other)
  Sender: FDA-Public Use
  Company Number: None

PATIENT
  Age: 29 Year
  Sex: Female
  Weight: 68.038 kg

DRUGS (2)
  1. CYMBALTA [Suspect]
     Indication: PANIC ATTACK
     Dosage: 30MG
     Route: 048
  2. CYMBALTA [Suspect]
     Indication: ANXIETY
     Dosage: 30MG
     Route: 048

REACTIONS (2)
  - WEIGHT INCREASED [None]
  - WITHDRAWAL SYNDROME [None]
